FAERS Safety Report 6814846-3 (Version None)
Quarter: 2010Q3

REPORT INFORMATION
  Report Type: 
  Country: None (occurrence: None)
  Receive Date: 20100702
  Receipt Date: 20100624
  Transmission Date: 20110219
  Serious: Yes (Other)
  Sender: FDA-Public Use
  Company Number: B0659849A

PATIENT
  Sex: Male

DRUGS (5)
  1. PAXIL [Suspect]
     Indication: DEPRESSION
     Route: 048
     Dates: start: 20100517, end: 20100601
  2. GASMOTIN [Concomitant]
     Indication: GASTROINTESTINAL HYPOMOTILITY
     Dosage: 5MG PER DAY
     Route: 048
     Dates: start: 20100517, end: 20100601
  3. RIZE [Concomitant]
     Indication: ANXIETY
     Route: 048
     Dates: start: 20100517, end: 20100531
  4. MEILAX [Concomitant]
     Indication: ANXIETY
     Dosage: 1MG PER DAY
     Route: 048
     Dates: start: 20100517, end: 20100601
  5. LORAZEPAM [Concomitant]
     Indication: POOR QUALITY SLEEP
     Dosage: 1MG PER DAY
     Route: 048
     Dates: start: 20100517, end: 20100601

REACTIONS (6)
  - ASPARTATE AMINOTRANSFERASE INCREASED [None]
  - BLOOD CREATINE PHOSPHOKINASE INCREASED [None]
  - C-REACTIVE PROTEIN INCREASED [None]
  - NEUROLEPTIC MALIGNANT SYNDROME [None]
  - PYREXIA [None]
  - WHITE BLOOD CELL COUNT INCREASED [None]
